FAERS Safety Report 9025901 (Version 2)
Quarter: 2013Q1

REPORT INFORMATION
  Report Type: Report from Study
  Country: NL (occurrence: NL)
  Receive Date: 20130122
  Receipt Date: 20130204
  Transmission Date: 20140127
  Serious: Yes (Other)
  Sender: FDA-Public Use
  Company Number: NL-ROCHE-1181306

PATIENT
  Age: 51 Year
  Sex: Male
  Weight: 78 kg

DRUGS (3)
  1. BEVACIZUMAB [Suspect]
     Indication: BRAIN NEOPLASM MALIGNANT
     Dosage: LAST DOSE ADMINISTERED PRIOR TO SAE:14/JAN/2013
     Route: 042
     Dates: start: 20121119
  2. VALPROATE [Concomitant]
     Indication: EPILEPSY
     Route: 048
     Dates: start: 20121030
  3. INSULIN [Concomitant]
     Indication: DIABETES MELLITUS

REACTIONS (1)
  - Transient ischaemic attack [Recovered/Resolved]
